FAERS Safety Report 18030047 (Version 1)
Quarter: 2020Q3

REPORT INFORMATION
  Report Type: Spontaneous
  Country: FR (occurrence: FR)
  Receive Date: 20200715
  Receipt Date: 20200715
  Transmission Date: 20201103
  Serious: Yes (Hospitalization)
  Sender: FDA-Public Use
  Company Number: FR-TEVA-2020-FR-1800143

PATIENT
  Age: 38 Year
  Sex: Male

DRUGS (2)
  1. METHADONE AP?HP [Suspect]
     Active Substance: METHADONE HYDROCHLORIDE
     Dosage: 80 MG
     Route: 048
  2. PREGABALINE [Suspect]
     Active Substance: PREGABALIN
     Route: 048

REACTIONS (4)
  - Somnolence [Recovered/Resolved]
  - Mydriasis [Recovered/Resolved]
  - Bundle branch block [Recovered/Resolved]
  - Respiratory depression [Recovered/Resolved]
